FAERS Safety Report 8447570-4 (Version None)
Quarter: 2012Q2

REPORT INFORMATION
  Report Type: 
  Country: None (occurrence: None)
  Receive Date: 20120613
  Receipt Date: 20120613
  Transmission Date: 20120825
  Serious: Yes (Hospitalization)
  Sender: FDA-Public Use
  Company Number: None

PATIENT
  Age: 52 Year
  Sex: Male
  Weight: 112.7 kg

DRUGS (2)
  1. ROCURONIUM BROMIDE [Suspect]
     Indication: PARALYSIS
     Dosage: MG ONCE IV
     Route: 042
     Dates: start: 20120327, end: 20120327
  2. ROCURONIUM BROMIDE [Suspect]
     Indication: SEDATION
     Dosage: MG ONCE IV
     Route: 042
     Dates: start: 20120327, end: 20120327

REACTIONS (4)
  - ANAPHYLACTIC REACTION [None]
  - NO THERAPEUTIC RESPONSE [None]
  - HYPOTENSION [None]
  - TACHYCARDIA [None]
